FAERS Safety Report 22591958 (Version 1)
Quarter: 2023Q2

REPORT INFORMATION
  Report Type: Other
  Country: US (occurrence: None)
  Receive Date: 20230612
  Receipt Date: 20230612
  Transmission Date: 20230722
  Serious: Yes (Other)
  Sender: FDA-Public Use
  Company Number: US-ROCHE-3142079

PATIENT
  Age: 74 Year
  Sex: Female

DRUGS (6)
  1. ATEZOLIZUMAB [Suspect]
     Active Substance: ATEZOLIZUMAB
     Indication: Breast cancer metastatic
     Route: 042
  2. PACLITAXEL [Concomitant]
     Active Substance: PACLITAXEL
  3. PREDNISONE [Concomitant]
     Active Substance: PREDNISONE
  4. CEFEPIME [Concomitant]
     Active Substance: CEFEPIME HYDROCHLORIDE
  5. DOXORUBICIN HYDROCHLORIDE [Concomitant]
     Active Substance: DOXORUBICIN HYDROCHLORIDE
  6. CYCLOPHOSPHAMIDE [Concomitant]
     Active Substance: CYCLOPHOSPHAMIDE

REACTIONS (1)
  - Type 1 diabetes mellitus [Unknown]
